FAERS Safety Report 8261734-4 (Version None)
Quarter: 2012Q2

REPORT INFORMATION
  Report Type: 
  Country: None (occurrence: None)
  Receive Date: 20120405
  Receipt Date: 20120327
  Transmission Date: 20120825
  Serious: Yes (Hospitalization)
  Sender: FDA-Public Use
  Company Number: US-ELI_LILLY_AND_COMPANY-US201109001137

PATIENT
  Sex: Female

DRUGS (6)
  1. DOCUSATE SODIUM [Concomitant]
     Dosage: 1 DF, UNKNOWN
  2. DIGOXIN [Concomitant]
     Dosage: 1 DF, QD
  3. CALCIUM CARBONATE [Concomitant]
  4. FORTEO [Suspect]
     Indication: OSTEOPOROSIS
     Dosage: 20 UG, QD
     Route: 065
     Dates: start: 20100901
  5. FORTEO [Suspect]
     Dosage: 20 UG, QD
     Route: 065
  6. TRAMADOL HCL [Concomitant]

REACTIONS (2)
  - SURGERY [None]
  - ENDODONTIC PROCEDURE [None]
